FAERS Safety Report 25940591 (Version 1)
Quarter: 2025Q4

REPORT INFORMATION
  Report Type: Report from Study
  Country: KR (occurrence: KR)
  Receive Date: 20251020
  Receipt Date: 20251020
  Transmission Date: 20260117
  Serious: Yes (Hospitalization)
  Sender: MYLAN
  Company Number: KR-MYLANLABS-2025M1087467

PATIENT
  Sex: Female
  Weight: 62 kg

DRUGS (48)
  1. PREGABALIN [Suspect]
     Active Substance: PREGABALIN
     Indication: Neuropathy peripheral
     Dosage: 1 DOSAGE FORM, QD
     Dates: start: 20210601
  2. PREGABALIN [Suspect]
     Active Substance: PREGABALIN
     Dosage: 1 DOSAGE FORM, QD
     Route: 048
     Dates: start: 20210601
  3. PREGABALIN [Suspect]
     Active Substance: PREGABALIN
     Dosage: 1 DOSAGE FORM, QD
     Route: 048
     Dates: start: 20210601
  4. PREGABALIN [Suspect]
     Active Substance: PREGABALIN
     Dosage: 1 DOSAGE FORM, QD
     Dates: start: 20210601
  5. CLOPIDOGREL BISULFATE [Concomitant]
     Active Substance: CLOPIDOGREL BISULFATE
     Dosage: UNK
  6. CLOPIDOGREL BISULFATE [Concomitant]
     Active Substance: CLOPIDOGREL BISULFATE
     Dosage: UNK
     Route: 048
  7. CLOPIDOGREL BISULFATE [Concomitant]
     Active Substance: CLOPIDOGREL BISULFATE
     Dosage: UNK
     Route: 048
  8. CLOPIDOGREL BISULFATE [Concomitant]
     Active Substance: CLOPIDOGREL BISULFATE
     Dosage: UNK
  9. ASPIRIN [Concomitant]
     Active Substance: ASPIRIN
     Dosage: UNK
  10. ASPIRIN [Concomitant]
     Active Substance: ASPIRIN
     Dosage: UNK
     Route: 048
  11. ASPIRIN [Concomitant]
     Active Substance: ASPIRIN
     Dosage: UNK
     Route: 048
  12. ASPIRIN [Concomitant]
     Active Substance: ASPIRIN
     Dosage: UNK
  13. ATORVASTATIN CALCIUM [Concomitant]
     Active Substance: ATORVASTATIN CALCIUM
     Dosage: UNK
  14. ATORVASTATIN CALCIUM [Concomitant]
     Active Substance: ATORVASTATIN CALCIUM
     Dosage: UNK
     Route: 048
  15. ATORVASTATIN CALCIUM [Concomitant]
     Active Substance: ATORVASTATIN CALCIUM
     Dosage: UNK
     Route: 048
  16. ATORVASTATIN CALCIUM [Concomitant]
     Active Substance: ATORVASTATIN CALCIUM
     Dosage: UNK
  17. GLIMEPIRIDE [Concomitant]
     Active Substance: GLIMEPIRIDE
     Dosage: UNK
  18. GLIMEPIRIDE [Concomitant]
     Active Substance: GLIMEPIRIDE
     Dosage: UNK
     Route: 048
  19. GLIMEPIRIDE [Concomitant]
     Active Substance: GLIMEPIRIDE
     Dosage: UNK
     Route: 048
  20. GLIMEPIRIDE [Concomitant]
     Active Substance: GLIMEPIRIDE
     Dosage: UNK
  21. OXIRACETAM [Concomitant]
     Active Substance: OXIRACETAM
     Dosage: UNK
  22. OXIRACETAM [Concomitant]
     Active Substance: OXIRACETAM
     Dosage: UNK
     Route: 048
  23. OXIRACETAM [Concomitant]
     Active Substance: OXIRACETAM
     Dosage: UNK
     Route: 048
  24. OXIRACETAM [Concomitant]
     Active Substance: OXIRACETAM
     Dosage: UNK
  25. Amlodipine;Candesartan cilexetil [Concomitant]
     Dosage: UNK
  26. Amlodipine;Candesartan cilexetil [Concomitant]
     Dosage: UNK
     Route: 048
  27. Amlodipine;Candesartan cilexetil [Concomitant]
     Dosage: UNK
     Route: 048
  28. Amlodipine;Candesartan cilexetil [Concomitant]
     Dosage: UNK
  29. CILOSTAZOL\GINKGO BILOBA LEAF EXTRACT [Concomitant]
     Active Substance: CILOSTAZOL\GINKGO BILOBA LEAF EXTRACT
     Dosage: UNK
  30. CILOSTAZOL\GINKGO BILOBA LEAF EXTRACT [Concomitant]
     Active Substance: CILOSTAZOL\GINKGO BILOBA LEAF EXTRACT
     Dosage: UNK
     Route: 048
  31. CILOSTAZOL\GINKGO BILOBA LEAF EXTRACT [Concomitant]
     Active Substance: CILOSTAZOL\GINKGO BILOBA LEAF EXTRACT
     Dosage: UNK
     Route: 048
  32. CILOSTAZOL\GINKGO BILOBA LEAF EXTRACT [Concomitant]
     Active Substance: CILOSTAZOL\GINKGO BILOBA LEAF EXTRACT
     Dosage: UNK
  33. PROPRANOLOL HYDROCHLORIDE [Concomitant]
     Active Substance: PROPRANOLOL HYDROCHLORIDE
     Dosage: UNK
  34. PROPRANOLOL HYDROCHLORIDE [Concomitant]
     Active Substance: PROPRANOLOL HYDROCHLORIDE
     Dosage: UNK
     Route: 048
  35. PROPRANOLOL HYDROCHLORIDE [Concomitant]
     Active Substance: PROPRANOLOL HYDROCHLORIDE
     Dosage: UNK
     Route: 048
  36. PROPRANOLOL HYDROCHLORIDE [Concomitant]
     Active Substance: PROPRANOLOL HYDROCHLORIDE
     Dosage: UNK
  37. ACETAMINOPHEN [Concomitant]
     Active Substance: ACETAMINOPHEN
     Dosage: UNK
  38. ACETAMINOPHEN [Concomitant]
     Active Substance: ACETAMINOPHEN
     Dosage: UNK
     Route: 048
  39. ACETAMINOPHEN [Concomitant]
     Active Substance: ACETAMINOPHEN
     Dosage: UNK
     Route: 048
  40. ACETAMINOPHEN [Concomitant]
     Active Substance: ACETAMINOPHEN
     Dosage: UNK
  41. LYRICA [Concomitant]
     Active Substance: PREGABALIN
     Dosage: UNK
     Dates: start: 20210518, end: 20210531
  42. LYRICA [Concomitant]
     Active Substance: PREGABALIN
     Dosage: UNK
     Dates: start: 20210518, end: 20210531
  43. LYRICA [Concomitant]
     Active Substance: PREGABALIN
     Dosage: UNK
     Route: 048
     Dates: start: 20210518, end: 20210531
  44. LYRICA [Concomitant]
     Active Substance: PREGABALIN
     Dosage: UNK
     Route: 048
     Dates: start: 20210518, end: 20210531
  45. LYRICA [Concomitant]
     Active Substance: PREGABALIN
     Dosage: UNK
  46. LYRICA [Concomitant]
     Active Substance: PREGABALIN
     Dosage: UNK
  47. LYRICA [Concomitant]
     Active Substance: PREGABALIN
     Dosage: UNK
     Route: 048
  48. LYRICA [Concomitant]
     Active Substance: PREGABALIN
     Dosage: UNK
     Route: 048

REACTIONS (1)
  - Cerebral infarction [Recovering/Resolving]

NARRATIVE: CASE EVENT DATE: 20210617
